FAERS Safety Report 9095566 (Version 2)
Quarter: 2013Q2

REPORT INFORMATION
  Report Type: Spontaneous
  Country: PT (occurrence: PT)
  Receive Date: 20130219
  Receipt Date: 20130426
  Transmission Date: 20140414
  Serious: Yes (Hospitalization)
  Sender: FDA-Public Use
  Company Number: PHHY2013PT015500

PATIENT
  Age: 21 Year
  Sex: Female

DRUGS (4)
  1. AMOXICILLIN [Suspect]
     Indication: OTITIS MEDIA ACUTE
  2. INDOMETHACIN [Suspect]
  3. MAGNESIUM [Suspect]
  4. ERYTHROMYCIN [Suspect]

REACTIONS (9)
  - Vasoconstriction [Unknown]
  - Uterine contractions abnormal [Unknown]
  - Anaphylactic reaction [Unknown]
  - Pruritus generalised [Unknown]
  - Rash generalised [Unknown]
  - Vomiting [Unknown]
  - Dizziness [Unknown]
  - Lip oedema [Unknown]
  - Exposure during pregnancy [Unknown]
